FAERS Safety Report 14133053 (Version 2)
Quarter: 2018Q2

REPORT INFORMATION
  Report Type: Spontaneous
  Country: US (occurrence: US)
  Receive Date: 20171027
  Receipt Date: 20180426
  Transmission Date: 20180711
  Serious: Yes (Hospitalization)
  Sender: FDA-Public Use
  Company Number: US-ASTRAZENECA-2017SF08804

PATIENT
  Sex: Female
  Weight: 61.2 kg

DRUGS (1)
  1. TUDORZA PRESSAIR [Suspect]
     Active Substance: ACLIDINIUM BROMIDE
     Indication: CHRONIC OBSTRUCTIVE PULMONARY DISEASE
     Dosage: 400 MCG, ONE INHALATION TWICE A DAY
     Route: 055
     Dates: start: 201405

REACTIONS (3)
  - Device malfunction [Unknown]
  - Respiratory disorder [Recovering/Resolving]
  - Fatigue [Unknown]
